FAERS Safety Report 9648707 (Version 1)
Quarter: 2013Q4

REPORT INFORMATION
  Report Type: Spontaneous
  Country: US (occurrence: US)
  Receive Date: 20131028
  Receipt Date: 20131028
  Transmission Date: 20140711
  Serious: No
  Sender: FDA-Public Use
  Company Number: US-TEVA-440624USA

PATIENT
  Sex: Male
  Weight: 83.99 kg

DRUGS (2)
  1. PROAIR HFA [Suspect]
     Indication: DYSPNOEA
     Dosage: 2 PUFFS THREE TIMES A DAY AS NEEDED
  2. UNSPECIFIED [Concomitant]

REACTIONS (1)
  - Increased upper airway secretion [Recovered/Resolved]
